FAERS Safety Report 7511159-1 (Version None)
Quarter: 2011Q2

REPORT INFORMATION
  Report Type: 
  Country: None (occurrence: None)
  Receive Date: 20110531
  Receipt Date: 20090918
  Transmission Date: 20111010
  Serious: Yes (Other)
  Sender: FDA-Public Use
  Company Number: US-BAYER-200933858NA

PATIENT
  Age: 66 Year
  Sex: Male
  Weight: 75 kg

DRUGS (16)
  1. PRAVACHOL [Concomitant]
     Dosage: 20 MG
     Route: 048
  2. OMNIPAQUE 140 [Concomitant]
     Dosage: 200 ML
     Route: 042
     Dates: start: 20040817
  3. DESMOPRESSIN ACETATE [Concomitant]
     Dosage: 24 MG
     Route: 042
     Dates: start: 20050106
  4. OMNIPAQUE 140 [Concomitant]
     Dosage: 150 ML
     Route: 042
     Dates: start: 20041107
  5. MANNITOL [Concomitant]
     Dosage: 300MG
     Route: 042
     Dates: start: 20050106
  6. TRASYLOL [Suspect]
     Dosage: 50 ML/HOUR
     Route: 042
     Dates: start: 20050106, end: 20050106
  7. SOLU-MEDROL [Concomitant]
     Dosage: 250 MG
     Route: 042
     Dates: start: 20050106
  8. OMNIPAQUE 140 [Concomitant]
     Dosage: 290 ML
     Route: 042
     Dates: start: 20040406
  9. LEVAQUIN [Concomitant]
     Dosage: 500 MG
     Route: 042
     Dates: start: 20050106
  10. TRASYLOL [Suspect]
     Indication: CORONARY ARTERY BYPASS
     Dosage: 1 ML TEST DOSE
     Route: 042
     Dates: start: 20050106, end: 20050106
  11. LIDOCAINE [Concomitant]
     Dosage: 140 MG
     Route: 042
     Dates: start: 20050106
  12. TOPROL-XL [Concomitant]
     Dosage: 25 MG
     Route: 048
  13. LISINOPRIL [Concomitant]
     Dosage: 10 MG
     Route: 048
  14. TRASYLOL [Suspect]
     Indication: AORTIC VALVE REPLACEMENT
     Dosage: 200 ML LOADING DOSE
     Route: 042
     Dates: start: 20050106, end: 20050106
  15. LEVOPHED [Concomitant]
     Dosage: UNK
     Route: 042
     Dates: start: 20050106
  16. PROTAMINE SULFATE [Concomitant]
     Dosage: 500 MG
     Route: 042
     Dates: start: 20050106

REACTIONS (10)
  - RENAL IMPAIRMENT [None]
  - ANXIETY [None]
  - RENAL FAILURE [None]
  - INJURY [None]
  - STRESS [None]
  - FEAR [None]
  - RENAL INJURY [None]
  - UNEVALUABLE EVENT [None]
  - PAIN [None]
  - EMOTIONAL DISTRESS [None]
